FAERS Safety Report 13470693 (Version 3)
Quarter: 2019Q1

REPORT INFORMATION
  Report Type: Report from Study
  Country: CA (occurrence: CA)
  Receive Date: 20170424
  Receipt Date: 20190212
  Transmission Date: 20190417
  Serious: Yes (Life-Threatening, Hospitalization, Other)
  Sender: FDA-Public Use
  Company Number: CA-ROCHE-1737625

PATIENT
  Age: 17 Year
  Sex: Female

DRUGS (12)
  1. ACETAMINOPHEN. [Concomitant]
     Active Substance: ACETAMINOPHEN
     Route: 048
     Dates: start: 20170426
  2. DIPHENHYDRAMINE HCL [Concomitant]
     Active Substance: DIPHENHYDRAMINE HYDROCHLORIDE
     Route: 048
     Dates: start: 20160401
  3. DIPHENHYDRAMINE HCL [Concomitant]
     Active Substance: DIPHENHYDRAMINE HYDROCHLORIDE
     Route: 048
     Dates: start: 20170426
  4. SEPTRA [Concomitant]
     Active Substance: SULFAMETHOXAZOLE\TRIMETHOPRIM
  5. ACETAMINOPHEN. [Concomitant]
     Active Substance: ACETAMINOPHEN
     Route: 048
     Dates: start: 20160401
  6. METHOTREXATE. [Concomitant]
     Active Substance: METHOTREXATE
     Route: 065
  7. RITUXAN [Suspect]
     Active Substance: RITUXIMAB
     Indication: GRANULOMATOSIS WITH POLYANGIITIS
  8. PREDNISONE. [Concomitant]
     Active Substance: PREDNISONE
  9. RITUXAN [Suspect]
     Active Substance: RITUXIMAB
     Indication: VASCULITIS
     Dosage: ANOTHER MOST RECENT DOSE ON 02/MAY/2016, 02/JUN/2016, 05/APR/2017, 26/APR/2017
     Route: 042
     Dates: start: 20160401
  10. METHYLPREDNISOLONE. [Concomitant]
     Active Substance: METHYLPREDNISOLONE
     Route: 042
     Dates: start: 20160401
  11. FOLIC ACID. [Concomitant]
     Active Substance: FOLIC ACID
     Dosage: WEEKLY EXCEPT METHOTREXATE DAY
     Route: 065
  12. PANTOPRAZOLE [Concomitant]
     Active Substance: PANTOPRAZOLE
     Route: 065

REACTIONS (29)
  - Dyspnoea [Unknown]
  - Tachycardia [Unknown]
  - Blood pressure diastolic increased [Unknown]
  - Sneezing [Unknown]
  - Sluggishness [Unknown]
  - Cough [Unknown]
  - Contusion [Not Recovered/Not Resolved]
  - Lethargy [Unknown]
  - Stridor [Not Recovered/Not Resolved]
  - Laziness [Recovering/Resolving]
  - Dyspnoea [Unknown]
  - Ear infection [Not Recovered/Not Resolved]
  - Chest pain [Unknown]
  - Vomiting [Not Recovered/Not Resolved]
  - Throat tightness [Recovered/Resolved]
  - Rhinorrhoea [Unknown]
  - Ear pain [Unknown]
  - Respiratory tract infection [Unknown]
  - Blood pressure diastolic decreased [Unknown]
  - Hypoacusis [Unknown]
  - Dysphonia [Recovering/Resolving]
  - Cyanosis [Recovered/Resolved]
  - Headache [Not Recovered/Not Resolved]
  - Laryngeal stenosis [Unknown]
  - Vaginal discharge [Unknown]
  - Nausea [Not Recovered/Not Resolved]
  - Cough [Recovering/Resolving]
  - Erythema [Not Recovered/Not Resolved]
  - Pain [Not Recovered/Not Resolved]

NARRATIVE: CASE EVENT DATE: 201604
